FAERS Safety Report 19476944 (Version 1)
Quarter: 2021Q2

REPORT INFORMATION
  Report Type: Spontaneous
  Country: US (occurrence: US)
  Receive Date: 20210629
  Receipt Date: 20210629
  Transmission Date: 20210717
  Serious: Yes (Disabling)
  Sender: FDA-Public Use
  Company Number: None

PATIENT
  Age: 60 Year
  Sex: Female
  Weight: 78.75 kg

DRUGS (4)
  1. B ? COMPLEX [Concomitant]
  2. MYLAN BRAND LEVOTHYROXINE. 112MCG TABLETS [Suspect]
     Active Substance: LEVOTHYROXINE SODIUM
     Indication: HYPOTHYROIDISM
     Dosage: ?          QUANTITY:90 TABLET(S);?
     Route: 048
     Dates: start: 20210626, end: 20210628
  3. WOMAN^S VITAMINS [Concomitant]
  4. VITAMINS D, E [Concomitant]

REACTIONS (14)
  - Arthralgia [None]
  - Hyperhidrosis [None]
  - Oral mucosal eruption [None]
  - Hyperaesthesia [None]
  - Movement disorder [None]
  - Eye swelling [None]
  - Drug ineffective [None]
  - Rash [None]
  - Eye disorder [None]
  - Impaired driving ability [None]
  - Cheilitis [None]
  - Photophobia [None]
  - Rash pruritic [None]
  - Skin burning sensation [None]

NARRATIVE: CASE EVENT DATE: 20210628
